FAERS Safety Report 21392435 (Version 1)
Quarter: 2022Q3

REPORT INFORMATION
  Report Type: Spontaneous
  Country: US (occurrence: US)
  Receive Date: 20220929
  Receipt Date: 20220929
  Transmission Date: 20221027
  Serious: No
  Sender: FDA-Public Use
  Company Number: US-Calliditas-2022CAL00323

PATIENT
  Age: 47 Year
  Sex: Male

DRUGS (1)
  1. TARPEYO [Suspect]
     Active Substance: BUDESONIDE
     Indication: Nephropathy
     Dosage: 16MG (4MG CAPSULES) ONCE DAILY
     Route: 048
     Dates: start: 20220818

REACTIONS (6)
  - Peripheral swelling [Unknown]
  - Rash erythematous [Unknown]
  - Dizziness [Unknown]
  - Blood pressure increased [Unknown]
  - Acne [Unknown]
  - Gout [Unknown]

NARRATIVE: CASE EVENT DATE: 20220823
